FAERS Safety Report 11309678 (Version 1)
Quarter: 2015Q3

REPORT INFORMATION
  Report Type: Spontaneous
  Country: US (occurrence: US)
  Receive Date: 20150724
  Receipt Date: 20150724
  Transmission Date: 20151125
  Serious: No
  Sender: FDA-Public Use
  Company Number: US-009507513-1507USA010867

PATIENT
  Age: 32 Year
  Sex: Female
  Weight: 91.16 kg

DRUGS (1)
  1. IMPLANON [Suspect]
     Active Substance: ETONOGESTREL
     Dosage: UNK
     Dates: end: 20150407

REACTIONS (2)
  - Device kink [Unknown]
  - Device breakage [Unknown]
